FAERS Safety Report 12183458 (Version 5)
Quarter: 2017Q4

REPORT INFORMATION
  Report Type: Spontaneous
  Country: US (occurrence: US)
  Receive Date: 20160316
  Receipt Date: 20171214
  Transmission Date: 20180320
  Serious: Yes (Hospitalization, Other)
  Sender: FDA-Public Use
  Company Number: US-ASTELLAS-2016US009772

PATIENT
  Sex: Male

DRUGS (1)
  1. XTANDI [Suspect]
     Active Substance: ENZALUTAMIDE
     Indication: PROSTATE CANCER
     Route: 048

REACTIONS (6)
  - Cardiac disorder [Unknown]
  - Myocardial infarction [Unknown]
  - Gout [Unknown]
  - Pulmonary oedema [Unknown]
  - Cardiac pacemaker insertion [Unknown]
  - Drug dose omission [Unknown]
